FAERS Safety Report 4647225-8 (Version None)
Quarter: 2005Q2

REPORT INFORMATION
  Report Type: 
  Country: None (occurrence: None)
  Receive Date: 20050428
  Receipt Date: 20050324
  Transmission Date: 20051028
  Serious: Yes (Other)
  Sender: FDA-Public Use
  Company Number: 200512389US

PATIENT
  Sex: Female

DRUGS (3)
  1. ARAVA [Suspect]
     Indication: RHEUMATOID ARTHRITIS
     Route: 048
     Dates: start: 19960101, end: 20010301
  2. HUMIRA [Concomitant]
     Dosage: DOSE: NOT PROVIDED
  3. METHOTREXATE [Concomitant]
     Dosage: DOSE: NOT PROVIDED

REACTIONS (4)
  - CONDITION AGGRAVATED [None]
  - OSTEONECROSIS [None]
  - RADIATION INJURY [None]
  - SQUAMOUS CELL CARCINOMA [None]
